FAERS Safety Report 25887504 (Version 1)
Quarter: 2025Q4

REPORT INFORMATION
  Report Type: Report from Study
  Country: US (occurrence: US)
  Receive Date: 20251007
  Receipt Date: 20251007
  Transmission Date: 20260117
  Serious: Yes (Hospitalization, Other)
  Sender: NOVARTIS
  Company Number: US-002147023-NVSC2025US090394

PATIENT
  Age: 80 Year
  Sex: Female

DRUGS (1)
  1. KISQALI [Suspect]
     Active Substance: RIBOCICLIB SUCCINATE
     Indication: Product used for unknown indication
     Dosage: 600 MG
     Route: 048

REACTIONS (5)
  - Atrial fibrillation [Unknown]
  - Anxiety [Unknown]
  - Breast cancer stage IV [Unknown]
  - Electrocardiogram QT prolonged [Unknown]
  - Disease progression [Unknown]

NARRATIVE: CASE EVENT DATE: 20250724
